FAERS Safety Report 16760577 (Version 1)
Quarter: 2019Q3

REPORT INFORMATION
  Report Type: Report from Study
  Country: GB (occurrence: GB)
  Receive Date: 20190830
  Receipt Date: 20190830
  Transmission Date: 20191005
  Serious: Yes (Other)
  Sender: FDA-Public Use
  Company Number: GB-SAMSUNG BIOEPIS-SB-2019-19773

PATIENT
  Sex: Female

DRUGS (1)
  1. IMRALDI [Suspect]
     Active Substance: ADALIMUMAB
     Indication: PROCTITIS
     Route: 058
     Dates: start: 20190612

REACTIONS (4)
  - Gingival abscess [Unknown]
  - Nasal discomfort [Unknown]
  - Product use in unapproved indication [Unknown]
  - Eye infection [Not Recovered/Not Resolved]
